FAERS Safety Report 8174088 (Version 3)
Quarter: 2012Q4

REPORT INFORMATION
  Report Type: Report from Study
  Country: JP (occurrence: JP)
  Receive Date: 20111010
  Receipt Date: 20120906
  Transmission Date: 20130627
  Serious: Yes (Hospitalization, Other)
  Sender: FDA-Public Use
  Company Number: JP-PFIZER INC-2008091587

PATIENT
  Age: 62 Year
  Sex: Female
  Weight: 47 kg

DRUGS (3)
  1. RIFABUTIN [Suspect]
     Indication: MYCOBACTERIUM AVIUM COMPLEX INFECTION
     Dosage: 300 mg, 1x/day
     Route: 048
     Dates: start: 20081014, end: 20081023
  2. RIFABUTIN [Suspect]
     Dosage: 150 mg, 1x/day
     Route: 048
     Dates: start: 20081024, end: 20081125
  3. ESANBUTOL [Concomitant]
     Indication: MYCOBACTERIUM AVIUM COMPLEX INFECTION
     Dosage: 750 mg, 1x/day
     Route: 048

REACTIONS (3)
  - Neutrophil count decreased [Recovered/Resolved]
  - Stomatitis [Recovered/Resolved]
  - Myalgia [Recovered/Resolved]
